FAERS Safety Report 11220424 (Version 1)
Quarter: 2015Q2

REPORT INFORMATION
  Report Type: Spontaneous
  Country: US (occurrence: None)
  Receive Date: 20150625
  Receipt Date: 20150625
  Transmission Date: 20150821
  Serious: Yes (Hospitalization)
  Sender: FDA-Public Use
  Company Number: None

PATIENT
  Age: 59 Year
  Sex: Male
  Weight: 95.5 kg

DRUGS (1)
  1. LENALIDOMIDE [Suspect]
     Active Substance: LENALIDOMIDE
     Dates: end: 20150608

REACTIONS (9)
  - Chest pain [None]
  - Pyrexia [None]
  - Sinus arrhythmia [None]
  - Ventricular extrasystoles [None]
  - Atelectasis [None]
  - Pleural effusion [None]
  - Lung infiltration [None]
  - Left atrial dilatation [None]
  - Electrocardiogram QT prolonged [None]

NARRATIVE: CASE EVENT DATE: 20150609
